FAERS Safety Report 7410127-8 (Version None)
Quarter: 2011Q2

REPORT INFORMATION
  Report Type: 
  Country: None (occurrence: None)
  Receive Date: 20110412
  Receipt Date: 20110404
  Transmission Date: 20111010
  Serious: Yes (Other)
  Sender: FDA-Public Use
  Company Number: DE-PFIZER INC-2011075834

PATIENT
  Age: 61 Year
  Sex: Female

DRUGS (14)
  1. PREDNIHEXAL [Concomitant]
     Indication: PAIN
     Dosage: UNK
     Route: 048
     Dates: start: 20101001
  2. ATARAX [Suspect]
     Indication: PRURITUS
     Dosage: 25 MG, 1X/DAY
     Route: 048
     Dates: start: 20101201, end: 20101215
  3. ULTRACET [Concomitant]
     Indication: PAIN
     Dosage: 2 DF, UNK
     Route: 048
     Dates: start: 20100101
  4. KALINOR-ACID [Concomitant]
     Indication: THYROID DISORDER
     Dosage: UNK
     Dates: start: 20000101
  5. EZETIMIBE [Concomitant]
     Indication: PAIN
  6. VITAMIN D [Concomitant]
     Indication: OSTEOPOROSIS
     Dosage: UNK
     Dates: start: 20000101
  7. TORASEMIDE [Concomitant]
     Indication: BLOOD PRESSURE INCREASED
     Dosage: 10 MG, UNK
     Route: 048
     Dates: start: 20101001
  8. CALCIUM D3 ^STADA^ [Concomitant]
     Indication: OSTEOPOROSIS
     Dosage: UNK
     Dates: start: 20000101
  9. BISOPROLOL [Concomitant]
     Indication: BLOOD PRESSURE
     Dosage: UNK
     Dates: start: 20000101
  10. DIOVAN [Concomitant]
     Indication: BLOOD PRESSURE
     Dosage: 40 MG, UNK
     Route: 048
     Dates: start: 20101001
  11. PANTOPRAZOLE [Concomitant]
     Indication: GASTRIC DISORDER
     Dosage: UNK
     Dates: start: 20100101
  12. MARCUMAR [Concomitant]
     Indication: PROPHYLAXIS
     Dosage: UNK
     Dates: start: 20101001
  13. MELOXICAM [Concomitant]
     Indication: ARTHRITIS
     Dosage: UNK
     Dates: start: 20100101
  14. EZETIMIBE [Concomitant]
     Indication: PROPHYLAXIS
     Dosage: 10 MG, UNK
     Route: 048
     Dates: start: 20101001

REACTIONS (2)
  - ALCOHOL INTERACTION [None]
  - TACHYCARDIA [None]
